FAERS Safety Report 9454087 (Version 1)
Quarter: 2013Q3

REPORT INFORMATION
  Report Type: Report from Study
  Country: GB (occurrence: GB)
  Receive Date: 20130812
  Receipt Date: 20130812
  Transmission Date: 20140515
  Serious: Yes (Other)
  Sender: FDA-Public Use
  Company Number: GB-ROCHE-1260304

PATIENT
  Age: 55 Year
  Sex: Female
  Weight: 83.5 kg

DRUGS (1)
  1. AVASTIN [Suspect]
     Indication: BREAST CANCER
     Dosage: DURATION: 4 WEEKS
     Route: 065

REACTIONS (2)
  - Disease progression [Unknown]
  - Oedema [Unknown]
